FAERS Safety Report 8564030-0 (Version None)
Quarter: 2012Q3

REPORT INFORMATION
  Report Type: 
  Country: None (occurrence: None)
  Receive Date: 20120803
  Receipt Date: 20120802
  Transmission Date: 20120928
  Serious: Yes (Death, Hospitalization, Other)
  Sender: FDA-Public Use
  Company Number: PHHY2012NL054647

PATIENT
  Sex: Male
  Weight: 65 kg

DRUGS (4)
  1. ZOMETA [Suspect]
     Dosage: 4MG/100 ML SOLUTION 1X PER 28 DAYS
     Dates: start: 20120426
  2. ZOMETA [Suspect]
     Dosage: 4MG/100 ML SOLUTION 1X PER 28 DAYS
     Dates: start: 20120229
  3. ZOMETA [Suspect]
     Dosage: 4MG/100 ML SOLUTION 1X PER 28 DAYS
     Dates: start: 20120529
  4. ZOMETA [Suspect]
     Indication: METASTASES TO BONE
     Dosage: 4MG/100 ML SOLUTION 1X PER 28 DAYS

REACTIONS (3)
  - SPINAL CORD DISORDER [None]
  - GENERAL PHYSICAL HEALTH DETERIORATION [None]
  - METASTATIC NEOPLASM [None]
